FAERS Safety Report 9481918 (Version 1)
Quarter: 2013Q3

REPORT INFORMATION
  Report Type: Spontaneous
  Country: US (occurrence: None)
  Receive Date: 20130823
  Receipt Date: 20130823
  Transmission Date: 20140515
  Serious: Yes (Hospitalization)
  Sender: FDA-Public Use
  Company Number: AUR-APL-2013-06909

PATIENT
  Age: 68 Year
  Sex: Female

DRUGS (3)
  1. LISINOPRIL [Suspect]
     Indication: PRODUCT USED FOR UNKNOWN INDICATION
  2. NADOLOL [Suspect]
  3. PREDNISONE [Suspect]

REACTIONS (6)
  - Cerebral haemorrhage [None]
  - Fall [None]
  - Head injury [None]
  - Blood pressure decreased [None]
  - Loss of consciousness [None]
  - Brain injury [None]
